FAERS Safety Report 12297450 (Version 1)
Quarter: 2016Q2

REPORT INFORMATION
  Report Type: Spontaneous
  Country: US (occurrence: US)
  Receive Date: 20160422
  Receipt Date: 20160422
  Transmission Date: 20160815
  Serious: Yes (Hospitalization)
  Sender: FDA-Public Use
  Company Number: US-FRI-1000084099

PATIENT
  Age: 53 Year
  Sex: Female

DRUGS (6)
  1. LINZESS [Suspect]
     Active Substance: LINACLOTIDE
     Indication: CROHN^S DISEASE
     Dosage: 290 MICROGRAM
     Route: 048
     Dates: start: 2014
  2. FLEXERIL [Concomitant]
     Active Substance: CYCLOBENZAPRINE HYDROCHLORIDE
     Route: 048
  3. THYROID MEDICATION [Concomitant]
     Active Substance: UNSPECIFIED INGREDIENT
     Indication: HYPOTHYROIDISM
     Route: 048
  4. VALIUM [Concomitant]
     Active Substance: DIAZEPAM
     Route: 048
  5. LINZESS [Suspect]
     Active Substance: LINACLOTIDE
     Indication: POST PROCEDURAL COMPLICATION
  6. GABAPENTIN. [Concomitant]
     Active Substance: GABAPENTIN
     Indication: NEURALGIA
     Route: 048

REACTIONS (3)
  - Off label use [Not Recovered/Not Resolved]
  - Intentional product misuse [Not Recovered/Not Resolved]
  - Post procedural complication [Recovering/Resolving]

NARRATIVE: CASE EVENT DATE: 2014
